FAERS Safety Report 19992684 (Version 2)
Quarter: 2021Q4

REPORT INFORMATION
  Report Type: Spontaneous
  Country: US (occurrence: US)
  Receive Date: 20211026
  Receipt Date: 20211029
  Transmission Date: 20220303
  Serious: Yes (Hospitalization)
  Sender: FDA-Public Use
  Company Number: US-BIOVITRUM-2021US9341

PATIENT
  Sex: Female
  Weight: 6 kg

DRUGS (1)
  1. SYNAGIS [Suspect]
     Active Substance: PALIVIZUMAB
     Indication: Product used for unknown indication
     Dosage: 100MG/1ML VL LIQUID
     Route: 030
     Dates: start: 20210905

REACTIONS (3)
  - Respiratory disorder [Unknown]
  - Respiratory syncytial virus infection [Unknown]
  - Pyrexia [Unknown]
